FAERS Safety Report 10499783 (Version 1)
Quarter: 2014Q4

REPORT INFORMATION
  Report Type: Spontaneous
  Country: US (occurrence: US)
  Receive Date: 20141006
  Receipt Date: 20141006
  Transmission Date: 20150528
  Serious: No
  Sender: FDA-Public Use
  Company Number: US-AMGEN INC.-USASP2014058960

PATIENT
  Sex: Female

DRUGS (1)
  1. PROLIA [Suspect]
     Active Substance: DENOSUMAB
     Indication: OSTEOPOROSIS
     Dosage: UNK
     Route: 065
     Dates: start: 201402

REACTIONS (9)
  - Gait disturbance [Unknown]
  - Pain in extremity [Unknown]
  - Arthralgia [Recovered/Resolved]
  - Rash [Unknown]
  - Secretion discharge [Unknown]
  - Skin irritation [Unknown]
  - Infection [Unknown]
  - Mobility decreased [Unknown]
  - Erythema [Unknown]

NARRATIVE: CASE EVENT DATE: 201402
